FAERS Safety Report 11171547 (Version 1)
Quarter: 2015Q2

REPORT INFORMATION
  Report Type: Spontaneous
  Country: US (occurrence: None)
  Receive Date: 20150605
  Receipt Date: 20150605
  Transmission Date: 20150821
  Serious: Yes (Hospitalization)
  Sender: FDA-Public Use
  Company Number: None

PATIENT
  Age: 19 Year
  Sex: Male
  Weight: 83.92 kg

DRUGS (1)
  1. LATUDA [Suspect]
     Active Substance: LURASIDONE HYDROCHLORIDE
     Indication: PSYCHOTIC DISORDER
     Dosage: 80 AT BEDTIME TAKEN BY MOUTH
     Route: 048

REACTIONS (3)
  - Dystonia [None]
  - Suicidal ideation [None]
  - Tremor [None]

NARRATIVE: CASE EVENT DATE: 20150531
